FAERS Safety Report 12984678 (Version 1)
Quarter: 2016Q4

REPORT INFORMATION
  Report Type: Report from Study
  Country: US (occurrence: US)
  Receive Date: 20161129
  Receipt Date: 20161129
  Transmission Date: 20170207
  Serious: Yes (Hospitalization, Other)
  Sender: FDA-Public Use
  Company Number: US-GILEAD-2016-0245179

PATIENT
  Age: 75 Year
  Sex: Female

DRUGS (1)
  1. RANOLAZINE [Suspect]
     Active Substance: RANOLAZINE
     Indication: ANGINA PECTORIS
     Dosage: UNK
     Route: 048
     Dates: start: 201607

REACTIONS (9)
  - Peripheral swelling [Unknown]
  - Staphylococcal infection [Unknown]
  - Pneumonia [Unknown]
  - Cardiac arrest [Unknown]
  - Cardiac failure congestive [Unknown]
  - Cardiac pacemaker removal [Unknown]
  - Mechanical ventilation [Unknown]
  - Renal failure [Unknown]
  - Head injury [Unknown]
